FAERS Safety Report 13349967 (Version 1)
Quarter: 2017Q1

REPORT INFORMATION
  Report Type: Spontaneous
  Country: US (occurrence: US)
  Receive Date: 20170319
  Receipt Date: 20170319
  Transmission Date: 20170429
  Serious: Yes (Other)
  Sender: FDA-Public Use
  Company Number: None

PATIENT
  Age: 23 Year
  Sex: Male
  Weight: 69.75 kg

DRUGS (2)
  1. VYVANSE [Suspect]
     Active Substance: LISDEXAMFETAMINE DIMESYLATE
     Indication: ATTENTION DEFICIT/HYPERACTIVITY DISORDER
     Route: 048
  2. IRON [Concomitant]
     Active Substance: IRON

REACTIONS (21)
  - Withdrawal syndrome [None]
  - Alopecia [None]
  - Weight decreased [None]
  - Constipation [None]
  - Impulsive behaviour [None]
  - Suicide attempt [None]
  - Diarrhoea [None]
  - Drug abuse [None]
  - Emotional disorder [None]
  - Self-injurious ideation [None]
  - Flatulence [None]
  - Hernia [None]
  - Tic [None]
  - Abdominal pain [None]
  - Heart rate increased [None]
  - Tourette^s disorder [None]
  - Malnutrition [None]
  - Personality disorder [None]
  - Onychophagia [None]
  - Abdominal distension [None]
  - Loss of consciousness [None]

NARRATIVE: CASE EVENT DATE: 20170319
